FAERS Safety Report 9722467 (Version 3)
Quarter: 2014Q1

REPORT INFORMATION
  Report Type: Report from Study
  Country: FR (occurrence: FR)
  Receive Date: 20131202
  Receipt Date: 20140211
  Transmission Date: 20141002
  Serious: Yes (Other)
  Sender: FDA-Public Use
  Company Number: FR-MILLENNIUM PHARMACEUTICALS, INC.-2013JNJ001161

PATIENT
  Sex: 0

DRUGS (8)
  1. VELCADE [Suspect]
     Indication: MANTLE CELL LYMPHOMA
     Dosage: UNK
     Route: 058
     Dates: start: 20121106
  2. VELCADE [Suspect]
     Dosage: UNK
     Route: 058
     Dates: start: 20121208
  3. LEVACT [Suspect]
     Indication: MANTLE CELL LYMPHOMA
     Dosage: 2.5 UNK, UNK
     Route: 042
     Dates: start: 20121106
  4. LEVACT [Suspect]
     Dosage: UNK
     Route: 042
     Dates: start: 20121208
  5. MABTHERA [Suspect]
     Indication: MANTLE CELL LYMPHOMA
     Dosage: UNK
     Route: 042
     Dates: start: 20121106
  6. MABTHERA [Suspect]
     Dosage: 40 MG, UNK
     Route: 042
     Dates: start: 20121208
  7. DEXAMETHASONE [Suspect]
     Indication: MANTLE CELL LYMPHOMA
     Dosage: 40 MG, UNK
     Route: 042
     Dates: start: 20121106
  8. DEXAMETHASONE [Suspect]
     Dosage: 40 MG, UNK
     Route: 042
     Dates: start: 20121208

REACTIONS (1)
  - Prostate cancer [Not Recovered/Not Resolved]
